FAERS Safety Report 24886964 (Version 2)
Quarter: 2025Q1

REPORT INFORMATION
  Report Type: Spontaneous
  Country: AR (occurrence: AR)
  Receive Date: 20250127
  Receipt Date: 20250210
  Transmission Date: 20250409
  Serious: Yes (Other)
  Sender: ROCHE
  Company Number: AR-002147023-NVSC2024AR240442

PATIENT
  Age: 86 Year
  Sex: Male

DRUGS (9)
  1. XOLAIR [Suspect]
     Active Substance: OMALIZUMAB
     Indication: Chronic spontaneous urticaria
     Dosage: 300 MILLIGRAM PER MILLILITRE, Q4W
     Route: 058
     Dates: start: 202402
  2. XOLAIR [Suspect]
     Active Substance: OMALIZUMAB
     Dosage: 300 MILLIGRAM PER MILLILITRE, Q4W
     Route: 058
     Dates: start: 202402
  3. Simultan [Concomitant]
     Indication: Product used for unknown indication
  4. OMEPRAZOLE [Concomitant]
     Active Substance: OMEPRAZOLE
     Indication: Product used for unknown indication
  5. CLONAZEPAM [Concomitant]
     Active Substance: CLONAZEPAM
     Indication: Product used for unknown indication
  6. ESCITALOPRAM [Concomitant]
     Active Substance: ESCITALOPRAM OXALATE
     Indication: Product used for unknown indication
  7. METFORMIN [Concomitant]
     Active Substance: METFORMIN HYDROCHLORIDE
     Indication: Product used for unknown indication
  8. MEPREDNISONE [Concomitant]
     Active Substance: MEPREDNISONE
     Indication: Product used for unknown indication
  9. MESALAMINE [Concomitant]
     Active Substance: MESALAMINE
     Indication: Product used for unknown indication

REACTIONS (3)
  - Cataract [Recovered/Resolved]
  - Paraesthesia [Recovered/Resolved]
  - Presbyopia [Unknown]

NARRATIVE: CASE EVENT DATE: 20241213
